FAERS Safety Report 22155336 (Version 1)
Quarter: 2023Q1

REPORT INFORMATION
  Report Type: Spontaneous
  Country: US (occurrence: None)
  Receive Date: 20230329
  Receipt Date: 20230329
  Transmission Date: 20230417
  Serious: Yes (Other)
  Sender: FDA-Public Use
  Company Number: None

PATIENT
  Age: 36 Year
  Sex: Male
  Weight: 78.75 kg

DRUGS (1)
  1. MINIPRESS [Suspect]
     Active Substance: PRAZOSIN HYDROCHLORIDE
     Indication: Muscle relaxant therapy
     Dosage: ORAL
     Route: 048

REACTIONS (8)
  - Feeling cold [None]
  - Somnolence [None]
  - Dizziness [None]
  - Fatigue [None]
  - Arthralgia [None]
  - Inflammation [None]
  - Depression [None]
  - Myalgia [None]

NARRATIVE: CASE EVENT DATE: 20230103
